FAERS Safety Report 23245795 (Version 1)
Quarter: 2023Q4

REPORT INFORMATION
  Report Type: Spontaneous
  Country: CN (occurrence: None)
  Receive Date: 20231130
  Receipt Date: 20231130
  Transmission Date: 20240109
  Serious: Yes (Hospitalization, Other)
  Sender: FDA-Public Use
  Company Number: 2023A268492

PATIENT
  Age: 26707 Day
  Sex: Male
  Weight: 55 kg

DRUGS (9)
  1. DAPAGLIFLOZIN [Suspect]
     Active Substance: DAPAGLIFLOZIN
     Indication: Cardiac failure
     Route: 048
     Dates: start: 20230818, end: 20231117
  2. DEXTROSE [Concomitant]
     Active Substance: DEXTROSE\DEXTROSE MONOHYDRATE
     Route: 042
  3. RIVAROXABAN [Concomitant]
     Active Substance: RIVAROXABAN
  4. CLOPIDOGREL [Concomitant]
     Active Substance: CLOPIDOGREL BISULFATE
  5. ASPIRIN\ATORVASTATIN\CLOPIDOGREL [Concomitant]
     Active Substance: ASPIRIN\ATORVASTATIN\CLOPIDOGREL
     Dosage: 20MG QN
  6. FUROSEMIDE [Concomitant]
     Active Substance: FUROSEMIDE
  7. SACUBITRIL\VALSARTAN [Concomitant]
     Active Substance: SACUBITRIL\VALSARTAN
     Dosage: HALF TABLET BID
  8. METOPROLOL [Concomitant]
     Active Substance: METOPROLOL
  9. SPIRONOLACTONE [Concomitant]
     Active Substance: SPIRONOLACTONE

REACTIONS (1)
  - Hypoglycaemic coma [Recovering/Resolving]

NARRATIVE: CASE EVENT DATE: 20231117
